FAERS Safety Report 5523523-0 (Version None)
Quarter: 2007Q4

REPORT INFORMATION
  Report Type: 
  Country: None (occurrence: None)
  Receive Date: 20071121
  Receipt Date: 20071120
  Transmission Date: 20080405
  Serious: Yes (Death, Life-Threatening, Hospitalization)
  Sender: FDA-Public Use
  Company Number: DE-BRISTOL-MYERS SQUIBB COMPANY-13988837

PATIENT
  Age: 62 Year
  Sex: Female
  Weight: 89 kg

DRUGS (8)
  1. PACLITAXEL [Suspect]
     Indication: BREAST CANCER
     Route: 042
     Dates: start: 20071105, end: 20071105
  2. CYCLOPHOSPHAMIDE [Suspect]
     Indication: BREAST CANCER
     Route: 042
     Dates: start: 20070830, end: 20071019
  3. EPIRUBICIN [Suspect]
     Indication: BREAST CANCER
     Route: 042
     Dates: start: 20070830, end: 20071019
  4. CAPECITABINE [Suspect]
     Indication: BREAST CANCER
     Route: 048
     Dates: start: 20071105, end: 20071112
  5. DEXAMETHASONE [Concomitant]
     Route: 042
     Dates: start: 20071105, end: 20071105
  6. SOSTRIL [Concomitant]
     Route: 042
     Dates: start: 20071105, end: 20071105
  7. ZOFRAN [Concomitant]
     Route: 042
     Dates: start: 20071105, end: 20071105
  8. CLEMASTINE FUMARATE [Concomitant]
     Route: 042
     Dates: start: 20071105, end: 20071105

REACTIONS (4)
  - MUCOSAL INFLAMMATION [None]
  - MULTI-ORGAN FAILURE [None]
  - SEPTIC SHOCK [None]
  - THROMBOCYTOPENIA [None]
